FAERS Safety Report 10181876 (Version 1)
Quarter: 2014Q2

REPORT INFORMATION
  Report Type: Spontaneous
  Country: US (occurrence: US)
  Receive Date: 20140519
  Receipt Date: 20140519
  Transmission Date: 20141212
  Serious: No
  Sender: FDA-Public Use
  Company Number: US-ASTRAZENECA-2014SE19442

PATIENT
  Age: 72 Year
  Sex: Female
  Weight: 72.6 kg

DRUGS (8)
  1. ATACAND [Suspect]
     Indication: HYPERTENSION
     Route: 048
     Dates: start: 2006
  2. NEXIUM [Suspect]
     Indication: GASTROOESOPHAGEAL REFLUX DISEASE
     Route: 048
  3. SIMVASTATIN [Concomitant]
     Indication: BLOOD CHOLESTEROL ABNORMAL
  4. SYNTHROID [Concomitant]
     Indication: HYPOTHYROIDISM
     Dosage: 112MCG DAILY
  5. ASPIRIN [Concomitant]
     Indication: CARDIAC DISORDER
  6. TOVIAZ [Concomitant]
     Indication: BLADDER PROLAPSE
     Dates: start: 2014
  7. CALCIUM CARBONATE + VITAMIN D [Concomitant]
     Indication: NUTRITIONAL SUPPLEMENTATION
  8. MAGNESIUM [Concomitant]
     Indication: MUSCLE SPASMS

REACTIONS (3)
  - Food allergy [Unknown]
  - Aortic valve calcification [Unknown]
  - Gastrooesophageal reflux disease [Unknown]
